FAERS Safety Report 15802313 (Version 1)
Quarter: 2019Q1

REPORT INFORMATION
  Report Type: Spontaneous
  Country: SE (occurrence: SE)
  Receive Date: 20190109
  Receipt Date: 20190109
  Transmission Date: 20190417
  Serious: Yes (Other)
  Sender: FDA-Public Use
  Company Number: SE-BRACCO-2019SE00013

PATIENT
  Age: 62 Year
  Sex: Female

DRUGS (6)
  1. ENALAPRIL [Concomitant]
     Active Substance: ENALAPRIL
     Dosage: 5 MG, QD
     Route: 048
     Dates: start: 20170130
  2. MOVICOL [Concomitant]
     Active Substance: POLYETHYLENE GLYCOL 3350\POTASSIUM CHLORIDE\SODIUM BICARBONATE\SODIUM CHLORIDE
     Dosage: 1 SACHET IF NEEDED, NO MORE OF 3 SACHETS FOR DAY, AS NECESSARY
     Route: 048
     Dates: start: 20170625
  3. CITALOPRAM [Concomitant]
     Active Substance: CITALOPRAM HYDROBROMIDE
     Dosage: 5 MG, QD
     Route: 048
     Dates: start: 20170301
  4. INOLAXOL [Concomitant]
     Active Substance: HERBALS\KARAYA GUM
     Dosage: 1 DF, QD
     Route: 048
     Dates: start: 20170626
  5. E-Z-CAT DRY [Suspect]
     Active Substance: BARIUM SULFATE
     Indication: X-RAY
     Dosage: UNK
     Route: 048
  6. CANDESARTAN. [Concomitant]
     Active Substance: CANDESARTAN
     Dosage: 8 MG, QD
     Route: 048
     Dates: start: 20170301

REACTIONS (1)
  - Hot flush [Recovered/Resolved]

NARRATIVE: CASE EVENT DATE: 20181124
